FAERS Safety Report 5248141-3 (Version None)
Quarter: 2007Q1

REPORT INFORMATION
  Report Type: 
  Country: None (occurrence: None)
  Receive Date: 20070227
  Receipt Date: 20060302
  Transmission Date: 20070707
  Serious: No
  Sender: FDA-Public Use
  Company Number: US-BRISTOL-MYERS SQUIBB COMPANY-13301957

PATIENT
  Age: 55 Year
  Sex: Male
  Weight: 108 kg

DRUGS (12)
  1. GLUCOPHAGE [Suspect]
     Indication: DIABETES MELLITUS NON-INSULIN-DEPENDENT
     Route: 048
     Dates: start: 20000101
  2. PRAVACHOL [Concomitant]
  3. SEREVENT [Concomitant]
     Dates: start: 20000101
  4. FLOVENT [Concomitant]
     Dates: start: 20000101
  5. NASACORT [Concomitant]
  6. COZAAR [Concomitant]
  7. LEXAPRO [Concomitant]
  8. RISPERDAL [Concomitant]
  9. STARLIX [Concomitant]
  10. ALBUTEROL [Concomitant]
     Dates: start: 20000101
  11. LEVOTHYROXINE SODIUM [Concomitant]
  12. CLARINEX [Concomitant]

REACTIONS (1)
  - STOMACH DISCOMFORT [None]
